FAERS Safety Report 22384972 (Version 1)
Quarter: 2023Q2

REPORT INFORMATION
  Report Type: Spontaneous
  Country: US (occurrence: US)
  Receive Date: 20230530
  Receipt Date: 20230530
  Transmission Date: 20230722
  Serious: Yes (Other)
  Sender: FDA-Public Use
  Company Number: US-AMGEN-USASP2023090058

PATIENT
  Sex: Male

DRUGS (1)
  1. SENSIPAR [Suspect]
     Active Substance: CINACALCET HYDROCHLORIDE
     Indication: Blood calcium abnormal
     Dosage: UNK
     Route: 065

REACTIONS (3)
  - Dementia [Unknown]
  - Wrong technique in product usage process [Unknown]
  - Dysphagia [Unknown]
